FAERS Safety Report 17402579 (Version 1)
Quarter: 2020Q1

REPORT INFORMATION
  Report Type: Spontaneous
  Country: US (occurrence: US)
  Receive Date: 20200210
  Receipt Date: 20200210
  Transmission Date: 20200409
  Serious: Yes (Disabling)
  Sender: FDA-Public Use
  Company Number: None

PATIENT
  Age: 54 Year
  Sex: Female
  Weight: 160 kg

DRUGS (8)
  1. SYNTRHOID [Concomitant]
  2. MAGNESIUM [Concomitant]
     Active Substance: MAGNESIUM
  3. AIMOVIG [Suspect]
     Active Substance: ERENUMAB-AOOE
     Indication: MIGRAINE
     Dosage: HAS BEEN ONGOING FOR A 1 1/2 YEARS- AM STOPPING
     Dates: start: 20181101, end: 20200201
  4. ELETRIPTAN. [Concomitant]
     Active Substance: ELETRIPTAN
  5. FISH OIL [Concomitant]
     Active Substance: FISH OIL
  6. MULTIVITAMIN [Concomitant]
     Active Substance: VITAMINS
  7. COMPOUNDED PROGESTERONE [Concomitant]
  8. VITAMIN D3 [Concomitant]
     Active Substance: CHOLECALCIFEROL

REACTIONS (10)
  - Dizziness [None]
  - Symptom recurrence [None]
  - Malaise [None]
  - Nausea [None]
  - Vertigo [None]
  - Saccadic eye movement [None]
  - Post procedural complication [None]
  - Binocular eye movement disorder [None]
  - Visual impairment [None]
  - Migraine [None]

NARRATIVE: CASE EVENT DATE: 20190411
